FAERS Safety Report 9687815 (Version 1)
Quarter: 2013Q4

REPORT INFORMATION
  Report Type: Spontaneous
  Country: GB (occurrence: None)
  Receive Date: 20131112
  Receipt Date: 20131112
  Transmission Date: 20140711
  Serious: Yes (Disabling)
  Sender: FDA-Public Use
  Company Number: AUR-APL-2013-09199

PATIENT
  Age: 87 Year
  Sex: Female
  Weight: 44.45 kg

DRUGS (5)
  1. AMOXICILLIN [Suspect]
     Indication: LOWER RESPIRATORY TRACT INFECTION
     Dosage: (500 MG),ORAL
     Route: 048
     Dates: start: 201201
  2. ASPIRIN (ACETYLSALICYLIC ACID) [Concomitant]
  3. LOSARTAN (LOSARTAN)? [Concomitant]
  4. PARACETAMOL (PARACETAMOL)? [Concomitant]
  5. PRAVASTATIN (PRAVASTATIN)? [Concomitant]

REACTIONS (4)
  - Anosmia [None]
  - Ageusia [None]
  - Diarrhoea [None]
  - Vomiting [None]
